FAERS Safety Report 25677468 (Version 1)
Quarter: 2025Q3

REPORT INFORMATION
  Report Type: Spontaneous
  Country: US (occurrence: US)
  Receive Date: 20250813
  Receipt Date: 20250813
  Transmission Date: 20251021
  Serious: Yes (Other)
  Sender: ALEXION PHARMACEUTICALS
  Company Number: US-AstraZeneca-CH-00925475A

PATIENT
  Age: 63 Year
  Sex: Male

DRUGS (4)
  1. TEZSPIRE [Suspect]
     Active Substance: TEZEPELUMAB-EKKO
     Indication: Single umbilical artery
     Dosage: 120 MILLIGRAM, Q4W
  2. TEZSPIRE [Suspect]
     Active Substance: TEZEPELUMAB-EKKO
  3. FASENRA [Suspect]
     Active Substance: BENRALIZUMAB
     Indication: Single umbilical artery
     Route: 065
  4. FASENRA [Suspect]
     Active Substance: BENRALIZUMAB

REACTIONS (2)
  - Vogt-Koyanagi-Harada disease [Not Recovered/Not Resolved]
  - Symptom recurrence [Not Recovered/Not Resolved]
